FAERS Safety Report 23438410 (Version 1)
Quarter: 2024Q1

REPORT INFORMATION
  Report Type: Spontaneous
  Country: US (occurrence: US)
  Receive Date: 20240124
  Receipt Date: 20240124
  Transmission Date: 20240410
  Serious: Yes (Hospitalization, Other)
  Sender: FDA-Public Use
  Company Number: US-TEVA-VS-3148437

PATIENT
  Age: 16 Year

DRUGS (4)
  1. FENTANYL [Suspect]
     Active Substance: FENTANYL\FENTANYL CITRATE
     Indication: Drug abuse
     Dosage: UP TO 20 PILLS PER DAY
     Route: 065
  2. BUPRENORPHINE [Suspect]
     Active Substance: BUPRENORPHINE
     Indication: Drug use disorder
     Route: 065
  3. BUPRENORPHINE [Suspect]
     Active Substance: BUPRENORPHINE
     Indication: Drug use disorder
     Dosage: LOW DOSE
     Route: 065
  4. BUPRENORPHINE [Suspect]
     Active Substance: BUPRENORPHINE
     Indication: Drug use disorder
     Dosage: TWO EXTENDED-RELEASE INJECTIONS
     Route: 065

REACTIONS (6)
  - Drug use disorder [Unknown]
  - Drug abuse [Unknown]
  - Injection site reaction [Unknown]
  - Drug withdrawal syndrome [Unknown]
  - Skin reaction [Unknown]
  - Treatment noncompliance [Unknown]
